FAERS Safety Report 18751226 (Version 1)
Quarter: 2021Q1

REPORT INFORMATION
  Report Type: Spontaneous
  Country: FR (occurrence: FR)
  Receive Date: 20210118
  Receipt Date: 20210118
  Transmission Date: 20210419
  Serious: Yes (Hospitalization)
  Sender: FDA-Public Use
  Company Number: FR-ACCORD-214812

PATIENT
  Age: 65 Year
  Sex: Female
  Weight: 60 kg

DRUGS (5)
  1. AMLODIPINE [Suspect]
     Active Substance: AMLODIPINE BESYLATE
     Indication: HYPERTENSION
     Route: 048
  2. TANGANIL [Suspect]
     Active Substance: ACETYLLEUCINE, L-
     Indication: VERTIGO
     Dosage: STRENGTH: 500 MG
     Route: 048
     Dates: start: 20201102, end: 20201118
  3. ELIQUIS [Suspect]
     Active Substance: APIXABAN
     Indication: PULMONARY EMBOLISM
     Dosage: STRENGTH: 5 MG
     Route: 048
     Dates: start: 20200721, end: 20201118
  4. TAGRISSO [Suspect]
     Active Substance: OSIMERTINIB
     Indication: LUNG NEOPLASM MALIGNANT
     Dosage: STRENGTH: 80 MG
     Route: 048
     Dates: start: 20200504
  5. VERATRAN [Suspect]
     Active Substance: CLOTIAZEPAM
     Indication: ANXIETY
     Dosage: STRENGTH: 10 MG, SCORED TABLET
     Route: 048
     Dates: start: 20200421

REACTIONS (1)
  - Ischaemic stroke [Recovering/Resolving]

NARRATIVE: CASE EVENT DATE: 20201118
